FAERS Safety Report 19722756 (Version 2)
Quarter: 2021Q3

REPORT INFORMATION
  Report Type: Spontaneous
  Country: CA (occurrence: CA)
  Receive Date: 20210819
  Receipt Date: 20210926
  Transmission Date: 20211014
  Serious: Yes (Hospitalization, Other)
  Sender: FDA-Public Use
  Company Number: CA-JNJFOC-20210828300

PATIENT
  Age: 60 Year
  Sex: Female
  Weight: 90 kg

DRUGS (1)
  1. INFLIXIMAB, RECOMBINANT [Suspect]
     Active Substance: INFLIXIMAB
     Indication: CROHN^S DISEASE
     Route: 042

REACTIONS (7)
  - Headache [Recovered/Resolved]
  - Urinary tract infection [Recovered/Resolved]
  - Off label use [Recovered/Resolved]
  - Endometrial neoplasm [Recovered/Resolved]
  - Procedural pain [Recovered/Resolved]
  - Loss of therapeutic response [Recovered/Resolved]
  - Underdose [Recovered/Resolved]
